FAERS Safety Report 6209453-X (Version None)
Quarter: 2009Q2

REPORT INFORMATION
  Report Type: 
  Country: None (occurrence: None)
  Receive Date: 20090601
  Receipt Date: 20090525
  Transmission Date: 20091009
  Serious: Yes (Other)
  Sender: FDA-Public Use
  Company Number: SE-ROCHE-634432

PATIENT
  Age: 50 Year
  Sex: Male

DRUGS (7)
  1. CYMEVENE [Suspect]
     Indication: CYTOMEGALOVIRUS GASTROINTESTINAL INFECTION
     Route: 042
     Dates: end: 20090509
  2. VALCYTE [Suspect]
     Indication: CYTOMEGALOVIRUS GASTROINTESTINAL INFECTION
     Route: 048
     Dates: start: 20090427, end: 20090430
  3. URSO FALK [Concomitant]
  4. SANDIMMUNE [Concomitant]
  5. BACTRIM [Concomitant]
  6. MYCOSTATIN ORAL SUSPENSION [Concomitant]
     Route: 048
  7. EMGESAN [Concomitant]

REACTIONS (1)
  - PERICARDITIS [None]
